FAERS Safety Report 24749257 (Version 1)
Quarter: 2024Q4

REPORT INFORMATION
  Report Type: Spontaneous
  Country: CN (occurrence: CN)
  Receive Date: 20241218
  Receipt Date: 20241218
  Transmission Date: 20250115
  Serious: Yes (Other)
  Sender: BAYER HEALTHCARE PHARMACEUTICALS INC.
  Company Number: CN-BAYER-2024A179035

PATIENT
  Age: 85 Year
  Sex: Female
  Weight: 43 kg

DRUGS (4)
  1. GLUCOBAY [Interacting]
     Active Substance: ACARBOSE
     Indication: Type 2 diabetes mellitus
     Dosage: 50 MG, TID
     Route: 048
     Dates: start: 20241128, end: 20241206
  2. REPAGLINIDE [Interacting]
     Active Substance: DULOXETINE HYDROCHLORIDE\REPAGLINIDE\TICAGRELOR
     Indication: Type 2 diabetes mellitus
     Dosage: 1 MG, TID
     Route: 048
     Dates: start: 20241201, end: 20241201
  3. REPAGLINIDE [Interacting]
     Active Substance: DULOXETINE HYDROCHLORIDE\REPAGLINIDE\TICAGRELOR
     Indication: Type 2 diabetes mellitus
     Dosage: 2 MG, TID
     Route: 048
     Dates: start: 20241202, end: 20241206
  4. VILDAGLIPTIN [Interacting]
     Active Substance: VILDAGLIPTIN
     Indication: Type 2 diabetes mellitus
     Dosage: 50 MG, BID
     Route: 048
     Dates: start: 20241204, end: 20241206

REACTIONS (2)
  - Hypoglycaemia [Recovering/Resolving]
  - Blood pressure diastolic decreased [None]

NARRATIVE: CASE EVENT DATE: 20241206
